FAERS Safety Report 5164978-3 (Version None)
Quarter: 2006Q4

REPORT INFORMATION
  Report Type: 
  Country: None (occurrence: None)
  Receive Date: 20061124
  Receipt Date: 20061114
  Transmission Date: 20070319
  Serious: Yes (Other)
  Sender: FDA-Public Use
  Company Number: 2006132031

PATIENT
  Sex: Male

DRUGS (1)
  1. LIPITOR [Suspect]
     Dosage: (40 MG), ORAL
     Route: 048
     Dates: start: 20061001

REACTIONS (7)
  - ARTHRALGIA [None]
  - DYSURIA [None]
  - GASTROINTESTINAL DISORDER [None]
  - GASTROINTESTINAL INFECTION [None]
  - INTESTINAL OBSTRUCTION [None]
  - MUSCLE SPASMS [None]
  - PAIN IN EXTREMITY [None]
